FAERS Safety Report 6275174-0 (Version None)
Quarter: 2009Q3

REPORT INFORMATION
  Report Type: 
  Country: None (occurrence: None)
  Receive Date: 20090721
  Receipt Date: 20090714
  Transmission Date: 20100115
  Serious: Yes (Other)
  Sender: FDA-Public Use
  Company Number: BR-BAYER-200919017LA

PATIENT
  Sex: Female

DRUGS (2)
  1. YAZ [Suspect]
     Indication: DRUG USE FOR UNKNOWN INDICATION
     Route: 048
     Dates: start: 20090501
  2. TETRACICLINA [Concomitant]
     Indication: DRUG USE FOR UNKNOWN INDICATION
     Route: 065
     Dates: start: 20090101

REACTIONS (6)
  - DIZZINESS [None]
  - MENSTRUATION DELAYED [None]
  - METRORRHAGIA [None]
  - SOMNOLENCE [None]
  - UTERINE INJURY [None]
  - UTERINE PAIN [None]
